FAERS Safety Report 12680399 (Version 5)
Quarter: 2017Q3

REPORT INFORMATION
  Report Type: Spontaneous
  Country: FR (occurrence: FR)
  Receive Date: 20160824
  Receipt Date: 20170907
  Transmission Date: 20171127
  Serious: Yes (Other)
  Sender: FDA-Public Use
  Company Number: FR-VERTEX PHARMACEUTICALS-2016-004917

PATIENT
  Age: 16 Year
  Sex: Female
  Weight: 48 kg

DRUGS (12)
  1. MOPRAL [Concomitant]
     Active Substance: OMEPRAZOLE SODIUM
  2. TOCOPHEROL [Concomitant]
     Active Substance: TOCOPHEROL
  3. NACL [Concomitant]
     Active Substance: SODIUM CHLORIDE
     Dosage: 3X1G/DAY IN SUMMER PRN
  4. ORKAMBI [Suspect]
     Active Substance: IVACAFTOR\LUMACAFTOR
     Indication: CYSTIC FIBROSIS
     Dosage: 2 TABLETS/12 HOURS
     Route: 048
     Dates: start: 20160211, end: 20160816
  5. CREON [Concomitant]
     Active Substance: PANCRELIPASE AMYLASE\PANCRELIPASE LIPASE\PANCRELIPASE PROTEASE
     Indication: PANCREATIC FAILURE
     Dosage: 12000 UNITS, 1 CAPSULE AM, 1 CAPSULE AFTERNOON SNACK TIME
  6. SERETIDE [Concomitant]
     Active Substance: FLUTICASONE PROPIONATE\SALMETEROL XINAFOATE
     Indication: BRONCHIAL HYPERREACTIVITY
     Dosage: 1 PUFF MORNINGS AND EVENINGS
  7. PULMOZYME [Concomitant]
     Active Substance: DORNASE ALFA
     Dosage: 1 VIAL PER DAY IN NEBULIZATION
  8. CREON [Concomitant]
     Active Substance: PANCRELIPASE AMYLASE\PANCRELIPASE LIPASE\PANCRELIPASE PROTEASE
     Indication: PANCREATIC FAILURE
     Dosage: UNK
     Dates: start: 2006
  9. VITAMIN A [Concomitant]
     Active Substance: VITAMIN A
     Dosage: 1 TABLET/WEEK
  10. TOBI [Concomitant]
     Active Substance: TOBRAMYCIN
     Indication: BACTERIAL DISEASE CARRIER
     Dosage: 4 CAPSULES X 2/DAY EVERY OTHER MONTH
  11. ZITHROMAX [Concomitant]
     Active Substance: AZITHROMYCIN DIHYDRATE
     Indication: BACTERIAL DISEASE CARRIER
     Dosage: 250MG 3X/WEEK
  12. VITAMIN D [Concomitant]
     Active Substance: CHOLECALCIFEROL
     Dosage: 1 VIAL (200,000)/MONTH

REACTIONS (1)
  - Hepatocellular injury [Not Recovered/Not Resolved]

NARRATIVE: CASE EVENT DATE: 201608
